FAERS Safety Report 16183768 (Version 4)
Quarter: 2019Q3

REPORT INFORMATION
  Report Type: Spontaneous
  Country: US (occurrence: US)
  Receive Date: 20190411
  Receipt Date: 20190926
  Transmission Date: 20191004
  Serious: Yes (Hospitalization, Disabling, Other)
  Sender: FDA-Public Use
  Company Number: US-009507513-1104USA04057

PATIENT
  Sex: Female
  Weight: 61.22 kg

DRUGS (9)
  1. FOSAMAX [Suspect]
     Active Substance: ALENDRONATE SODIUM
     Indication: OSTEOPOROSIS
     Dosage: 10 MG, UNK
     Route: 048
     Dates: start: 1999, end: 200703
  2. FOSAMAX [Suspect]
     Active Substance: ALENDRONATE SODIUM
     Dosage: 70/75
     Route: 048
     Dates: start: 20050922
  3. VITAMINS (UNSPECIFIED) [Concomitant]
     Active Substance: VITAMINS
     Dosage: 1 UNK, QD
     Dates: start: 1998
  4. SYNTHROID [Concomitant]
     Active Substance: LEVOTHYROXINE SODIUM
     Dosage: 100 MICROGRAM
     Route: 048
     Dates: start: 1999
  5. CITRACAL + D [Concomitant]
     Active Substance: CALCIUM CITRATE\VITAMIN D
     Dosage: 2 TABS IN AM AND 1 TAB IN PM
     Route: 048
     Dates: start: 1998
  6. HORMONES (UNSPECIFIED) [Concomitant]
     Active Substance: UNSPECIFIED INGREDIENT
     Dates: start: 1977, end: 2000
  7. FOSAMAX PLUS D [Suspect]
     Active Substance: ALENDRONATE SODIUM\CHOLECALCIFEROL
     Dosage: 70/2800
     Route: 048
     Dates: start: 20060928
  8. FOSAMAX [Suspect]
     Active Substance: ALENDRONATE SODIUM
     Dosage: 70 MG, QW
     Route: 048
     Dates: start: 200010, end: 200703
  9. CORTICOSTEROIDS (UNSPECIFIED) [Concomitant]
     Active Substance: UNSPECIFIED INGREDIENT
     Dates: start: 2004, end: 2011

REACTIONS (71)
  - Haemoglobin decreased [Unknown]
  - Thirst [Unknown]
  - Femur fracture [Unknown]
  - Femur fracture [Recovering/Resolving]
  - Hypertension [Unknown]
  - Atrophy [Unknown]
  - Bruxism [Unknown]
  - Haematocrit decreased [Unknown]
  - Dizziness [Unknown]
  - Tooth disorder [Unknown]
  - Tooth disorder [Unknown]
  - Tooth disorder [Unknown]
  - Osteoarthritis [Unknown]
  - Dental necrosis [Unknown]
  - Hyperglycaemia [Unknown]
  - Tooth disorder [Unknown]
  - Tooth fracture [Unknown]
  - Anxiety [Unknown]
  - Tooth disorder [Unknown]
  - Gastrooesophageal reflux disease [Unknown]
  - Depression [Unknown]
  - Bone loss [Unknown]
  - Tooth fracture [Unknown]
  - Back disorder [Unknown]
  - Tooth disorder [Unknown]
  - Hyperlipidaemia [Unknown]
  - Type 2 diabetes mellitus [Not Recovered/Not Resolved]
  - Femur fracture [Recovering/Resolving]
  - Gingival disorder [Unknown]
  - Tooth disorder [Unknown]
  - Dyspepsia [Unknown]
  - Hyperhidrosis [Unknown]
  - Insomnia [Unknown]
  - Clavicle fracture [Unknown]
  - Multiple injuries [Unknown]
  - Syncope [Unknown]
  - Tooth disorder [Unknown]
  - Blood cholesterol increased [Unknown]
  - Periodontitis [Not Recovered/Not Resolved]
  - Fistula [Unknown]
  - Tooth disorder [Unknown]
  - Tooth disorder [Unknown]
  - Benign neoplasm of thyroid gland [Unknown]
  - Vertigo [Unknown]
  - Scapula fracture [Unknown]
  - Osteoporosis [Not Recovered/Not Resolved]
  - Dental fistula [Unknown]
  - Neuropathy peripheral [Unknown]
  - Fall [Unknown]
  - Bone disorder [Unknown]
  - Vitamin D deficiency [Unknown]
  - Edentulous [Unknown]
  - Costochondritis [Recovering/Resolving]
  - Joint effusion [Unknown]
  - Sinus disorder [Unknown]
  - Dental implantation [Unknown]
  - Compression fracture [Unknown]
  - Tooth disorder [Unknown]
  - Drug hypersensitivity [Unknown]
  - Dermatitis allergic [Unknown]
  - Osteonecrosis of jaw [Unknown]
  - Tooth abscess [Unknown]
  - Fall [Unknown]
  - Gingivitis [Unknown]
  - Salivary gland disorder [Unknown]
  - Tooth disorder [Unknown]
  - Wrist fracture [Unknown]
  - Stress fracture [Unknown]
  - Low turnover osteopathy [Unknown]
  - Glaucoma [Unknown]
  - Fall [Unknown]

NARRATIVE: CASE EVENT DATE: 1999
